FAERS Safety Report 16328408 (Version 1)
Quarter: 2019Q2

REPORT INFORMATION
  Report Type: Spontaneous
  Country: TW (occurrence: TW)
  Receive Date: 20190518
  Receipt Date: 20190518
  Transmission Date: 20190711
  Serious: Yes (Other)
  Sender: FDA-Public Use
  Company Number: TW-MICRO LABS LIMITED-ML2019-01226

PATIENT
  Age: 57 Year
  Sex: Female

DRUGS (1)
  1. DIPHENHYDRAMINE HYDROCHLORIDE. [Suspect]
     Active Substance: DIPHENHYDRAMINE HYDROCHLORIDE
     Indication: RHEUMATOID ARTHRITIS
     Dosage: (30-90 MG/DAY)
     Route: 042

REACTIONS (7)
  - Drug dependence [Recovered/Resolved]
  - Anxiety [Unknown]
  - Agitation [Unknown]
  - Insomnia [Unknown]
  - Affect lability [Unknown]
  - Restlessness [Unknown]
  - Drug abuse [Recovered/Resolved]
